FAERS Safety Report 25965086 (Version 1)
Quarter: 2025Q4

REPORT INFORMATION
  Report Type: Spontaneous
  Country: US (occurrence: US)
  Receive Date: 20251027
  Receipt Date: 20251027
  Transmission Date: 20260117
  Serious: Yes (Other)
  Sender: ELI LILLY AND COMPANY
  Company Number: US-ELI_LILLY_AND_COMPANY-US202510019896

PATIENT
  Age: 68 Year
  Sex: Female

DRUGS (3)
  1. KISUNLA [Suspect]
     Active Substance: DONANEMAB-AZBT
     Indication: Product used for unknown indication
     Dosage: 700 MG, UNKNOWN (1ST INFUSION)
     Route: 042
  2. KISUNLA [Suspect]
     Active Substance: DONANEMAB-AZBT
     Dosage: 700 MG, UNKNOWN (2ND INFUSION)
     Route: 042
  3. KISUNLA [Suspect]
     Active Substance: DONANEMAB-AZBT
     Dosage: 700 MG, UNKNOWN (3RD INFUSION)
     Route: 042

REACTIONS (1)
  - Cerebral infarction [Unknown]
